FAERS Safety Report 9093509 (Version 1)
Quarter: 2013Q1

REPORT INFORMATION
  Report Type: Spontaneous
  Country: US (occurrence: None)
  Receive Date: 20130213
  Receipt Date: 20130213
  Transmission Date: 20140127
  Serious: Yes (Other)
  Sender: FDA-Public Use
  Company Number: None

PATIENT
  Age: 66 Year
  Sex: Male
  Weight: 73.9 kg

DRUGS (1)
  1. METHADONE [Suspect]
     Route: 048

REACTIONS (4)
  - Unresponsive to stimuli [None]
  - Somnolence [None]
  - Lethargy [None]
  - Overdose [None]
